FAERS Safety Report 9908577 (Version 1)
Quarter: 2014Q1

REPORT INFORMATION
  Report Type: Spontaneous
  Country: US (occurrence: None)
  Receive Date: 20140214
  Receipt Date: 20140214
  Transmission Date: 20141002
  Serious: Yes (Hospitalization)
  Sender: FDA-Public Use
  Company Number: None

PATIENT
  Age: 72 Year
  Sex: Female
  Weight: 105.6 kg

DRUGS (12)
  1. GLIMEPIRIDE [Suspect]
     Indication: DIABETES MELLITUS
     Dosage: CHRONIC?
     Route: 048
  2. TRIFLUOPERAZINE [Concomitant]
  3. LYRICA [Concomitant]
  4. AMIODARONE [Concomitant]
  5. SYNTHYROID [Concomitant]
  6. LIPITOR [Concomitant]
  7. AMLODIPINE [Concomitant]
  8. DORZOLAMIDE [Concomitant]
  9. BIMATOPROST [Concomitant]
  10. HCTZ [Concomitant]
  11. RELAFEN [Concomitant]
  12. BRIMONID [Concomitant]

REACTIONS (4)
  - Hypoglycaemia [None]
  - Mental status changes [None]
  - Infectious colitis [None]
  - Food poisoning [None]
